FAERS Safety Report 7580334-2 (Version None)
Quarter: 2011Q2

REPORT INFORMATION
  Report Type: 
  Country: None (occurrence: None)
  Receive Date: 20110622
  Receipt Date: 20110607
  Transmission Date: 20111010
  Serious: Yes (Death, Hospitalization, Other)
  Sender: FDA-Public Use
  Company Number: AUR-APL-2011-01567

PATIENT
  Age: 19 Year
  Sex: Female

DRUGS (5)
  1. DOMPERIDONE (DOMPERIDONE) [Suspect]
     Indication: PRODUCT USED FOR UNKNOWN INDICATION
     Dosage: (1 D)
  2. SILDENAFIL CITRATE [Suspect]
     Indication: PULMONARY ARTERIAL HYPERTENSION
     Dosage: 150 MG (50 MG,3 IN 1 D)
  3. SITAXENTAN (SITAXENTAN) [Suspect]
     Indication: PULMONARY ARTERIAL HYPERTENSION
     Dosage: (100 MG,1 D)
  4. OMEPRAZOLE [Suspect]
     Indication: PRODUCT USED FOR UNKNOWN INDICATION
     Dosage: (1 D),ORAL
     Route: 048
  5. AMOXICILLIN [Suspect]
     Indication: EAR INFECTION

REACTIONS (9)
  - HEPATIC NECROSIS [None]
  - ACUTE HEPATIC FAILURE [None]
  - HEPATOTOXICITY [None]
  - LIVER INJURY [None]
  - DRUG INTERACTION [None]
  - PULMONARY ARTERIAL HYPERTENSION [None]
  - COAGULOPATHY [None]
  - DISEASE PROGRESSION [None]
  - BRAIN OEDEMA [None]
